FAERS Safety Report 9500137 (Version 1)
Quarter: 2013Q3

REPORT INFORMATION
  Report Type: Spontaneous
  Country: PK (occurrence: PK)
  Receive Date: 20130905
  Receipt Date: 20130905
  Transmission Date: 20140515
  Serious: Yes (Death)
  Sender: FDA-Public Use
  Company Number: PHHY2013PK097041

PATIENT
  Sex: Female
  Weight: 70 kg

DRUGS (2)
  1. AFINITOR [Suspect]
     Indication: BREAST CANCER
     Dosage: 10 MG, QD
     Route: 048
     Dates: start: 20130414
  2. EXEMESTANE [Concomitant]
     Indication: BREAST CANCER
     Dosage: 25 MG, QD
     Dates: start: 20130414

REACTIONS (1)
  - Death [Fatal]
